FAERS Safety Report 13518674 (Version 1)
Quarter: 2017Q2

REPORT INFORMATION
  Report Type: Report from Study
  Country: US (occurrence: US)
  Receive Date: 20170505
  Receipt Date: 20170505
  Transmission Date: 20170830
  Serious: Yes (Death, Hospitalization)
  Sender: FDA-Public Use
  Company Number: US-SA-2017SA079966

PATIENT
  Age: 68 Year
  Sex: Female
  Weight: 50.5 kg

DRUGS (20)
  1. VALSARTAN. [Concomitant]
     Active Substance: VALSARTAN
     Dates: start: 20170114
  2. FESIN [Concomitant]
     Active Substance: IRON SUCROSE
     Indication: ANAEMIA
     Dates: start: 20170208, end: 20170213
  3. ELOXATIN [Suspect]
     Active Substance: OXALIPLATIN
     Indication: ADENOCARCINOMA GASTRIC
     Route: 042
     Dates: start: 20170202, end: 20170210
  4. ELOXATIN [Suspect]
     Active Substance: OXALIPLATIN
     Indication: ADENOCARCINOMA GASTRIC
     Route: 042
     Dates: start: 20170228, end: 20170228
  5. NEORESTAR [Concomitant]
     Indication: PREMEDICATION
     Dates: start: 20170202, end: 20170209
  6. OXYCONTIN [Concomitant]
     Active Substance: OXYCODONE HYDROCHLORIDE
     Indication: TUMOUR PAIN
     Dates: start: 20170123
  7. MINERALS NOS/VITAMINS NOS/AMINO ACIDS NOS [Concomitant]
     Dates: start: 20170113
  8. AMLODIPINE BESILATE [Concomitant]
     Active Substance: AMLODIPINE BESYLATE
     Dates: start: 20170114
  9. IRSOGLADINE MALEATE [Concomitant]
     Active Substance: IRSOGLADINE MALEATE
  10. DEXART [Concomitant]
     Active Substance: DEXAMETHASONE SODIUM PHOSPHATE
     Indication: PROPHYLAXIS
     Dates: start: 20170202
  11. EDARAVONE [Concomitant]
     Active Substance: EDARAVONE
     Route: 042
     Dates: end: 20170218
  12. FUROSEMIDE. [Concomitant]
     Active Substance: FUROSEMIDE
     Dates: start: 20170203, end: 20170206
  13. OTERACIL POTASSIUM/GIMERACIL/TEGAFUR [Suspect]
     Active Substance: GIMERACIL\OTERACIL\TEGAFUR
     Indication: ADENOCARCINOMA GASTRIC
     Route: 048
     Dates: start: 20170202, end: 20170210
  14. SODIUM CHLORIDE. [Concomitant]
     Active Substance: SODIUM CHLORIDE
     Dates: start: 20170131
  15. INVESTIGATIONAL DRUG [Suspect]
     Active Substance: INVESTIGATIONAL PRODUCT
     Indication: ADENOCARCINOMA GASTRIC
     Route: 042
     Dates: start: 20170202, end: 20170209
  16. OTERACIL POTASSIUM/GIMERACIL/TEGAFUR [Suspect]
     Active Substance: GIMERACIL\OTERACIL\TEGAFUR
     Indication: ADENOCARCINOMA GASTRIC
     Route: 048
     Dates: start: 20170228, end: 20170322
  17. OXINORM [Concomitant]
     Active Substance: OXYCODONE HYDROCHLORIDE
     Dates: start: 20170123
  18. NEXIUM [Concomitant]
     Active Substance: ESOMEPRAZOLE MAGNESIUM
     Dates: start: 20170105
  19. MAINTATE [Concomitant]
     Active Substance: BISOPROLOL FUMARATE
     Indication: HYPERTENSION
     Dates: start: 20170114
  20. GRANISETRON [Concomitant]
     Active Substance: GRANISETRON
     Dates: start: 20170202

REACTIONS (1)
  - Cerebral infarction [Recovering/Resolving]

NARRATIVE: CASE EVENT DATE: 20170210
